FAERS Safety Report 5414944-5 (Version None)
Quarter: 2007Q3

REPORT INFORMATION
  Report Type: 
  Country: None (occurrence: None)
  Receive Date: 20070815
  Receipt Date: 20070808
  Transmission Date: 20080115
  Serious: Yes (Other)
  Sender: FDA-Public Use
  Company Number: US-JNJFOC-20070802374

PATIENT
  Sex: Female
  Weight: 90.72 kg

DRUGS (13)
  1. FENTANYL TRANSDERMAL SYSTEM [Suspect]
     Indication: PAIN
     Route: 062
  2. FENTANYL [Suspect]
     Route: 062
  3. FENTANYL [Suspect]
     Dosage: 100UG/HR PLUS 25UG/HR PATCHES
     Route: 062
  4. FENTANYL [Suspect]
     Indication: PAIN
     Route: 062
  5. PERCOCET [Concomitant]
     Indication: PAIN
     Route: 048
  6. REQUIP [Concomitant]
     Indication: RESTLESS LEGS SYNDROME
     Route: 048
  7. METFORMIN HCL [Concomitant]
     Indication: DIABETES MELLITUS
     Route: 048
  8. ZOCOR [Concomitant]
     Indication: BLOOD CHOLESTEROL
     Route: 048
  9. DIOVAN [Concomitant]
     Route: 048
  10. LASIX [Concomitant]
     Route: 048
  11. HYDROCHLOROTHIAZIDE [Concomitant]
     Route: 048
  12. ACIPHEX [Concomitant]
     Indication: THROAT TIGHTNESS
     Route: 048
  13. ASPIRIN [Concomitant]
     Route: 048

REACTIONS (2)
  - ROAD TRAFFIC ACCIDENT [None]
  - WRONG TECHNIQUE IN DRUG USAGE PROCESS [None]
